FAERS Safety Report 8390711-8 (Version None)
Quarter: 2012Q2

REPORT INFORMATION
  Report Type: 
  Country: None (occurrence: None)
  Receive Date: 20120529
  Receipt Date: 20120523
  Transmission Date: 20120825
  Serious: Yes (Hospitalization)
  Sender: FDA-Public Use
  Company Number: PHHY2012TR044344

PATIENT
  Age: 41 Year
  Sex: Male
  Weight: 65 kg

DRUGS (3)
  1. PROPRANOLOL [Concomitant]
     Dosage: 40 MG, TID
  2. PROPRANOLOL [Concomitant]
     Indication: HYPERTHYROIDISM
     Dosage: 20 MG/ DAY
  3. METHIMAZOLE [Suspect]
     Indication: HYPERTHYROIDISM
     Dosage: 30 MG/ DAY

REACTIONS (26)
  - JAUNDICE [None]
  - HEART RATE INCREASED [None]
  - SEPSIS [None]
  - DEPRESSED LEVEL OF CONSCIOUSNESS [None]
  - METABOLIC ACIDOSIS [None]
  - HAEMODYNAMIC INSTABILITY [None]
  - COAGULATION TIME SHORTENED [None]
  - DISSEMINATED INTRAVASCULAR COAGULATION [None]
  - ATRIAL FIBRILLATION [None]
  - ACUTE RESPIRATORY DISTRESS SYNDROME [None]
  - HYPOXIA [None]
  - MULTI-ORGAN FAILURE [None]
  - ACUTE HEPATIC FAILURE [None]
  - NAUSEA [None]
  - ACUTE PULMONARY OEDEMA [None]
  - RENAL FAILURE ACUTE [None]
  - THYROTOXIC CRISIS [None]
  - CARDIAC FAILURE [None]
  - CARDIAC MURMUR [None]
  - DYSPEPSIA [None]
  - ACIDOSIS [None]
  - HEPATORENAL SYNDROME [None]
  - EPIGASTRIC DISCOMFORT [None]
  - FIBRINOLYSIS INCREASED [None]
  - HEPATITIS FULMINANT [None]
  - LETHARGY [None]
